FAERS Safety Report 9037749 (Version 2)
Quarter: 2013Q2

REPORT INFORMATION
  Report Type: Spontaneous
  Country: US (occurrence: US)
  Receive Date: 20130129
  Receipt Date: 20130527
  Transmission Date: 20140414
  Serious: Yes (Other)
  Sender: FDA-Public Use
  Company Number: US-AMGEN-USASP2013004768

PATIENT
  Age: 53 Year
  Sex: Female

DRUGS (4)
  1. ENBREL [Suspect]
     Indication: RHEUMATOID ARTHRITIS
     Dosage: 50 MG, QWK
     Route: 058
     Dates: start: 20130114, end: 20130115
  2. ASPIRIN BUFFERED [Concomitant]
     Dosage: 325 MG, UNK
  3. ALEVE [Concomitant]
     Dosage: 220 MG, UNK
  4. TYLENOL                            /00020001/ [Concomitant]
     Dosage: 325 MG, UNK

REACTIONS (7)
  - Vision blurred [Unknown]
  - Vomiting [Recovered/Resolved]
  - Blindness [Recovered/Resolved]
  - Hot flush [Recovered/Resolved]
  - Dysgeusia [Unknown]
  - Headache [Recovered/Resolved]
  - Tension headache [Not Recovered/Not Resolved]
